FAERS Safety Report 5069474-X (Version None)
Quarter: 2006Q3

REPORT INFORMATION
  Report Type: 
  Country: None (occurrence: None)
  Receive Date: 20060802
  Receipt Date: 20060802
  Transmission Date: 20061208
  Serious: No
  Sender: FDA-Public Use
  Company Number: None

PATIENT
  Age: 80 Year
  Sex: Male
  Weight: 68.4932 kg

DRUGS (1)
  1. CLARINEX [Suspect]
     Indication: RHINITIS ALLERGIC
     Dosage: QD # 30

REACTIONS (2)
  - DRUG INEFFECTIVE [None]
  - NAUSEA [None]
